FAERS Safety Report 23107209 (Version 1)
Quarter: 2023Q4

REPORT INFORMATION
  Report Type: Spontaneous
  Country: US (occurrence: US)
  Receive Date: 20231026
  Receipt Date: 20231026
  Transmission Date: 20240109
  Serious: No
  Sender: FDA-Public Use
  Company Number: US-BRISTOL-MYERS SQUIBB COMPANY-2023-150574

PATIENT
  Age: 40 Year
  Sex: Male

DRUGS (3)
  1. ZEPOSIA [Suspect]
     Active Substance: OZANIMOD HYDROCHLORIDE
     Indication: Colitis ulcerative
     Dosage: TAKE 0.23 MG BY MOUTH 1 TIME A DAY FOR 4 DAYS, THEN TAKE 0.46 MG 1 TIME A DAY FOR 3DAYS, THEN TAKE 0
     Route: 048
     Dates: start: 202309
  2. ZEPOSIA [Suspect]
     Active Substance: OZANIMOD HYDROCHLORIDE
     Dosage: TAKE 0.23 MG BY MOUTH 1 TIME A DAY FOR 4 DAYS, THEN TAKE 0.46 MG 1 TIME A DAY FOR 3DAYS, THEN TAKE 0
     Route: 048
     Dates: start: 202309
  3. ZEPOSIA [Suspect]
     Active Substance: OZANIMOD HYDROCHLORIDE
     Dosage: TAKE 0.23 MG BY MOUTH 1 TIME A DAY FOR 4 DAYS, THEN TAKE 0.46 MG 1 TIME A DAY FOR 3DAYS, THEN TAKE 0
     Route: 048
     Dates: start: 202309

REACTIONS (1)
  - Colitis ulcerative [Unknown]
